FAERS Safety Report 4985902-X (Version None)
Quarter: 2006Q2

REPORT INFORMATION
  Report Type: 
  Country: None (occurrence: None)
  Receive Date: 20060421
  Receipt Date: 20060412
  Transmission Date: 20061013
  Serious: Yes (Hospitalization, Other)
  Sender: FDA-Public Use
  Company Number: 200610526GDS

PATIENT
  Age: 20 Year
  Sex: Female

DRUGS (16)
  1. CIPROFLOXACIN [Suspect]
     Indication: CYSTIC FIBROSIS
     Dosage: 400 MG, BID, INTRAVENOUS
     Route: 042
     Dates: start: 20001123, end: 20001130
  2. MERREM [Suspect]
     Indication: BURKHOLDERIA CEPACIA INFECTION
     Dosage: 1 G, TID, INTRAVENOUS
     Route: 042
     Dates: start: 20001123, end: 20001130
  3. MERREM [Suspect]
     Indication: CYSTIC FIBROSIS
     Dosage: 1 G, TID, INTRAVENOUS
     Route: 042
     Dates: start: 20001123, end: 20001130
  4. TOBI [Suspect]
     Indication: CYSTIC FIBROSIS
     Dosage: 300 MG, BID, RESPIRATORY (INHALATION)
     Route: 055
     Dates: start: 20001123, end: 20001130
  5. COTAZYM [Concomitant]
     Indication: BURKHOLDERIA CEPACIA INFECTION
  6. FLOVENT [Concomitant]
  7. OMEPRAZOLE [Concomitant]
  8. SALBUTAMOL [Concomitant]
  9. URSO FALK [Concomitant]
  10. PHYTOMENADIONE [Concomitant]
  11. MULTIVITAMIN [Concomitant]
  12. PANCRELIPASE [Concomitant]
  13. DIMENHYDRINATE [Concomitant]
  14. MAGNOLAX [Concomitant]
  15. ACETAMINOPHEN W/ CODEINE [Concomitant]
  16. SALMETEROL [Concomitant]

REACTIONS (4)
  - ABDOMINAL PAIN UPPER [None]
  - COUGH [None]
  - HEPATITIS [None]
  - PHARYNGITIS [None]
